FAERS Safety Report 8869540 (Version 1)
Quarter: 2012Q4

REPORT INFORMATION
  Report Type: 
  Country: US (occurrence: US)
  Receive Date: 20121028
  Receipt Date: 20121028
  Transmission Date: 20130627
  Serious: Yes (Hospitalization)
  Sender: FDA-Public Use
  Company Number: US-BAYER-2012-112530

PATIENT
  Age: 79 Year
  Sex: Female
  Weight: 50 kg

DRUGS (9)
  1. XARELTO [Suspect]
     Indication: THROMBOSIS PROPHYLAXIS
     Dosage: UNK
     Route: 048
     Dates: start: 201207
  2. XARELTO [Suspect]
     Indication: SURGERY
  3. ACETYLSALICYLIC ACID({=100 MG) [Suspect]
  4. GABAPENTIN [Concomitant]
  5. SERTRALINE [Concomitant]
  6. NORCO [Concomitant]
  7. COMBIVENT [Concomitant]
  8. ALL OTHER THERAPEUTIC PRODUCTS [Concomitant]
  9. PRAVASTATIN [Concomitant]

REACTIONS (1)
  - Haematochezia [Unknown]
